FAERS Safety Report 19219691 (Version 3)
Quarter: 2021Q2

REPORT INFORMATION
  Report Type: Spontaneous
  Country: US (occurrence: US)
  Receive Date: 20210506
  Receipt Date: 20210528
  Transmission Date: 20210717
  Serious: No
  Sender: FDA-Public Use
  Company Number: US-AMGEN INC.-USASP2021067417

PATIENT
  Age: 42 Year
  Sex: Female
  Weight: 91.61 kg

DRUGS (1)
  1. AIMOVIG [Suspect]
     Active Substance: ERENUMAB-AOOE
     Indication: PRODUCT USED FOR UNKNOWN INDICATION
     Dosage: 70 MILLIGRAM
     Route: 065
     Dates: start: 202003

REACTIONS (6)
  - Headache [Not Recovered/Not Resolved]
  - Accidental exposure to product [Unknown]
  - Wrong technique in product usage process [Unknown]
  - Injury associated with device [Unknown]
  - Device dispensing error [Unknown]
  - Device difficult to use [Unknown]

NARRATIVE: CASE EVENT DATE: 202104
